FAERS Safety Report 8192567-5 (Version None)
Quarter: 2012Q1

REPORT INFORMATION
  Report Type: 
  Country: None (occurrence: None)
  Receive Date: 20120308
  Receipt Date: 20120305
  Transmission Date: 20120608
  Serious: Yes (Death)
  Sender: FDA-Public Use
  Company Number: IN-GE HEALTHCARE MEDICAL DIAGNOSTICS-OMPQ-NO-1202S-0184

PATIENT
  Age: 63 Year
  Sex: Male
  Weight: 50 kg

DRUGS (2)
  1. OMNIPAQUE 140 [Suspect]
     Indication: TUBERCULOSIS
     Route: 042
     Dates: start: 20120131, end: 20120131
  2. RIFINAH (RCINEX E) [Concomitant]

REACTIONS (1)
  - CIRCULATORY COLLAPSE [None]
